FAERS Safety Report 22595849 (Version 1)
Quarter: 2023Q2

REPORT INFORMATION
  Report Type: Spontaneous
  Country: FR (occurrence: None)
  Receive Date: 20230613
  Receipt Date: 20230613
  Transmission Date: 20230721
  Serious: Yes (Hospitalization, Other)
  Sender: FDA-Public Use
  Company Number: 2023A120375

PATIENT
  Age: 64 Year
  Sex: Female
  Weight: 51 kg

DRUGS (3)
  1. OMEPRAZOLE [Suspect]
     Active Substance: OMEPRAZOLE
     Indication: Helicobacter gastritis
     Route: 048
     Dates: start: 20230414, end: 20230422
  2. HYDROCHLOROTHIAZIDE\IRBESARTAN [Suspect]
     Active Substance: HYDROCHLOROTHIAZIDE\IRBESARTAN
     Indication: Hypertension
     Route: 048
  3. PYLERA [Suspect]
     Active Substance: BISMUTH SUBCITRATE POTASSIUM\METRONIDAZOLE\TETRACYCLINE HYDROCHLORIDE
     Indication: Helicobacter gastritis
     Dosage: 3 CAPSULES 4 X/DAY12.0DF UNKNOWN
     Route: 048
     Dates: start: 20230414, end: 20230422

REACTIONS (16)
  - Hypokalaemia [Recovered/Resolved]
  - Rhabdomyolysis [Unknown]
  - Hyponatraemia [Recovered/Resolved]
  - Diarrhoea [Recovered/Resolved]
  - Confusional state [Recovered/Resolved]
  - Vomiting [Recovered/Resolved]
  - Transaminases increased [Recovering/Resolving]
  - Nausea [Recovered/Resolved]
  - Asthenia [Unknown]
  - Decreased appetite [Unknown]
  - Fall [Unknown]
  - Injury [Unknown]
  - Haematoma [Unknown]
  - Psychomotor retardation [Unknown]
  - Drug intolerance [Unknown]
  - COVID-19 [Unknown]

NARRATIVE: CASE EVENT DATE: 20230421
